FAERS Safety Report 5187890-2 (Version None)
Quarter: 2006Q4

REPORT INFORMATION
  Report Type: 
  Country: None (occurrence: None)
  Receive Date: 20061221
  Receipt Date: 20061120
  Transmission Date: 20070319
  Serious: Yes (Other)
  Sender: FDA-Public Use
  Company Number: GB-AMGEN-UK201227

PATIENT
  Sex: Female
  Weight: 55 kg

DRUGS (3)
  1. ARANESP [Suspect]
     Indication: ANAEMIA OF MALIGNANT DISEASE
     Route: 058
     Dates: start: 20040604, end: 20041210
  2. FERRO-GRAD FOLIC [Concomitant]
     Route: 048
     Dates: start: 20040604, end: 20041029
  3. FERROUS SULFATE TAB [Concomitant]
     Route: 048
     Dates: start: 20041029, end: 20041210

REACTIONS (2)
  - HAEMOGLOBIN INCREASED [None]
  - POLYCYTHAEMIA [None]
